FAERS Safety Report 8465885-0 (Version None)
Quarter: 2012Q2

REPORT INFORMATION
  Report Type: 
  Country: None (occurrence: None)
  Receive Date: 20120626
  Receipt Date: 20120622
  Transmission Date: 20120825
  Serious: Yes (Life-Threatening)
  Sender: FDA-Public Use
  Company Number: AU-BAYER-2012-062208

PATIENT
  Age: 36 Year
  Sex: Female

DRUGS (1)
  1. ULTRAVIST 150 [Suspect]
     Indication: COMPUTERISED TOMOGRAM ABDOMEN
     Dosage: 60 ML, ONCE
     Route: 042
     Dates: start: 20120622, end: 20120622

REACTIONS (8)
  - URTICARIA [None]
  - PRURITUS [None]
  - DYSPNOEA [None]
  - HEADACHE [None]
  - SNEEZING [None]
  - ERYTHEMA [None]
  - EAR DISCOMFORT [None]
  - THROAT TIGHTNESS [None]
